FAERS Safety Report 15741778 (Version 1)
Quarter: 2018Q4

REPORT INFORMATION
  Report Type: Spontaneous
  Country: NL (occurrence: NL)
  Receive Date: 20181219
  Receipt Date: 20181219
  Transmission Date: 20190205
  Serious: Yes (Hospitalization)
  Sender: FDA-Public Use
  Company Number: NL-IGSA-SR10007517

PATIENT
  Age: 86 Year
  Sex: Male

DRUGS (5)
  1. HUMAN NORMAL IMMUNOGLOBULIN (IV) [Suspect]
     Active Substance: HUMAN IMMUNOGLOBULIN G
     Indication: CHRONIC LYMPHOCYTIC LEUKAEMIA
     Dosage: UNK
     Route: 065
  2. IDELALISIB [Suspect]
     Active Substance: IDELALISIB
     Indication: CHRONIC LYMPHOCYTIC LEUKAEMIA RECURRENT
     Dosage: UNK
     Route: 065
     Dates: start: 20160509, end: 20180320
  3. IDELALISIB [Suspect]
     Active Substance: IDELALISIB
     Dosage: UNK
     Route: 065
     Dates: start: 20180502, end: 20180626
  4. COTRIMOXAZOLE [Concomitant]
     Active Substance: SULFAMETHOXAZOLE\TRIMETHOPRIM
     Indication: ANTIFUNGAL PROPHYLAXIS
     Dosage: UNK
     Route: 065
  5. OMEPRAZOLE. [Concomitant]
     Active Substance: OMEPRAZOLE
     Dosage: UNK
     Route: 065

REACTIONS (10)
  - Hydrocholecystis [Unknown]
  - Pneumonia [Recovered/Resolved]
  - Influenza like illness [Unknown]
  - Escherichia urinary tract infection [Recovered/Resolved]
  - Anaphylactic reaction [Recovered/Resolved]
  - Cholelithiasis [Unknown]
  - Blood immunoglobulin G decreased [Unknown]
  - Cholecystitis acute [Recovered/Resolved]
  - Prerenal failure [Recovered/Resolved]
  - Otitis externa [Unknown]

NARRATIVE: CASE EVENT DATE: 201802
